FAERS Safety Report 4622096-4 (Version None)
Quarter: 2005Q1

REPORT INFORMATION
  Report Type: 
  Country: None (occurrence: None)
  Receive Date: 20050329
  Receipt Date: 20050201
  Transmission Date: 20050727
  Serious: Yes (Death)
  Sender: FDA-Public Use
  Company Number: 2005S1000364

PATIENT
  Age: 86 Year
  Sex: Female

DRUGS (14)
  1. CLOZAPINE [Suspect]
     Indication: SCHIZOPHRENIA
     Dosage: 75 MG; HS; PO
     Route: 048
     Dates: start: 20031103, end: 20050129
  2. CLOZAPINE [Suspect]
     Dosage: 100 MG; HS; PO
     Route: 048
     Dates: start: 20031103, end: 20050129
  3. FENTANYL [Concomitant]
  4. MORPHINE SULFATE [Concomitant]
  5. LEVOTHYROXINE SODIUM [Concomitant]
  6. QUETIAPINE FUMARATE [Concomitant]
  7. ZINC [Concomitant]
  8. TOCOPHEROL CONCENTRATE CAP [Concomitant]
  9. CALCITONIN-SALMON [Concomitant]
  10. SENNA FRUIT [Concomitant]
  11. CARBIDOPA AND LEVODOPA [Concomitant]
  12. ACETYL SALICYLIC ACID USP BAT [Concomitant]
  13. MIRTAZAPINE [Concomitant]
  14. IBUPROFEN [Concomitant]

REACTIONS (1)
  - CEREBROVASCULAR ACCIDENT [None]
